FAERS Safety Report 8332058-1 (Version None)
Quarter: 2012Q2

REPORT INFORMATION
  Report Type: 
  Country: None (occurrence: None)
  Receive Date: 20120502
  Receipt Date: 20120420
  Transmission Date: 20120825
  Serious: Yes (Other)
  Sender: FDA-Public Use
  Company Number: LB-BAXTER-2012BAX003581

PATIENT
  Age: 2 Year
  Sex: Male
  Weight: 10 kg

DRUGS (12)
  1. NICARDIPINE HYDROCHLORIDE [Concomitant]
     Indication: HYPERTENSION
     Route: 042
     Dates: start: 20120303
  2. CYCLOPHOSPHAMIDE [Suspect]
     Indication: NEPHROPATHY
     Dosage: 230 MG DILUTED IN 125 ML NS 0.45%
     Route: 042
     Dates: start: 20120317, end: 20120413
  3. CALTRATE + VITAMIN D [Concomitant]
     Dosage: 1 CAP
  4. RANIMED [Concomitant]
  5. RENITEC                            /00574902/ [Concomitant]
  6. PREDNISONE [Concomitant]
  7. DIANEAL PD1 GLUCOSE 1,36% [Suspect]
     Dosage: 1.36%-2.27%
     Route: 033
     Dates: start: 20120313
  8. TRANDATE [Concomitant]
  9. LASIX [Concomitant]
     Indication: DIURETIC THERAPY
     Dosage: 2-4 MG/KG
     Route: 065
     Dates: start: 20120303
  10. ALFACALCIDOL [Concomitant]
     Dosage: 2 DROPS/1 DAY (2 UG/ML)
  11. BACTRIM [Concomitant]
     Indication: ANTIBIOTIC PROPHYLAXIS
     Dates: start: 20120317
  12. DIANEAL PD4 GLUCOSE 2,27% [Suspect]
     Route: 033
     Dates: start: 20120313

REACTIONS (2)
  - PYREXIA [None]
  - VASCULAR PURPURA [None]
